FAERS Safety Report 8809045 (Version 1)
Quarter: 2012Q4

REPORT INFORMATION
  Report Type: 
  Country: US (occurrence: US)
  Receive Date: 20120926
  Receipt Date: 20120926
  Transmission Date: 20130627
  Serious: Yes (Other)
  Sender: FDA-Public Use
  Company Number: US-PFIZER INC-2012237634

PATIENT

DRUGS (1)
  1. ADVIL PM [Suspect]
     Indication: SLEEP DISORDER
     Dosage: UNK

REACTIONS (4)
  - Deafness [Unknown]
  - Tinnitus [Unknown]
  - Insomnia [Unknown]
  - Feeling abnormal [Unknown]
